FAERS Safety Report 8193564-6 (Version None)
Quarter: 2012Q1

REPORT INFORMATION
  Report Type: 
  Country: None (occurrence: None)
  Receive Date: 20120308
  Receipt Date: 20120301
  Transmission Date: 20120608
  Serious: Yes (Hospitalization)
  Sender: FDA-Public Use
  Company Number: 2012SP000681

PATIENT
  Sex: Female

DRUGS (12)
  1. SINGULAIR [Concomitant]
     Indication: PRODUCT USED FOR UNKNOWN INDICATION
  2. CALCIUM [Concomitant]
     Indication: PRODUCT USED FOR UNKNOWN INDICATION
  3. ATORVASTATIN [Concomitant]
     Indication: BLOOD CHOLESTEROL ABNORMAL
  4. ALL OTHER THERAPEUTIC PRODUCTS [Concomitant]
     Indication: PRODUCT USED FOR UNKNOWN INDICATION
  5. OMNARIS NASAL SPRAY [Suspect]
     Indication: MULTIPLE ALLERGIES
     Route: 045
     Dates: start: 20100709, end: 20120228
  6. OMNARIS NASAL SPRAY [Suspect]
     Indication: NASAL OEDEMA
     Route: 045
     Dates: start: 20100709, end: 20120228
  7. KENALOG [Concomitant]
     Indication: RETINAL OEDEMA
  8. FLAX SEED OIL [Concomitant]
     Indication: PRODUCT USED FOR UNKNOWN INDICATION
  9. PRILOSEC [Concomitant]
     Indication: DIVERTICULUM
  10. RESTASIS [Concomitant]
     Indication: RETINAL OEDEMA
  11. PROBIOTICS [Concomitant]
     Indication: GINGIVAL DISORDER
  12. PROBIOTICS [Concomitant]
     Indication: DIVERTICULUM

REACTIONS (4)
  - GASTROENTERITIS VIRAL [None]
  - VOMITING [None]
  - ORAL CANDIDIASIS [None]
  - COLECTOMY [None]
